FAERS Safety Report 5298804-9 (Version None)
Quarter: 2007Q2

REPORT INFORMATION
  Report Type: 
  Country: None (occurrence: None)
  Receive Date: 20070417
  Receipt Date: 20070405
  Transmission Date: 20071010
  Serious: Yes (Other)
  Sender: FDA-Public Use
  Company Number: GB-ROCHE-492809

PATIENT
  Age: 54 Year
  Sex: Female
  Weight: 101 kg

DRUGS (2)
  1. XENICAL [Suspect]
     Indication: OBESITY
     Route: 048
     Dates: start: 20070215, end: 20070319
  2. UNKNOWN HYPERTENSION DRUG [Concomitant]
     Indication: HYPERTENSION

REACTIONS (1)
  - TRANSIENT ISCHAEMIC ATTACK [None]
